FAERS Safety Report 15582956 (Version 1)
Quarter: 2018Q4

REPORT INFORMATION
  Report Type: Spontaneous
  Country: US (occurrence: US)
  Receive Date: 20181103
  Receipt Date: 20181103
  Transmission Date: 20190205
  Serious: Yes (Other)
  Sender: FDA-Public Use
  Company Number: US-INSYS THERAPEUTICS, INC-INS201810-000401

PATIENT
  Sex: Female

DRUGS (10)
  1. ACTIQ [Suspect]
     Active Substance: FENTANYL CITRATE
     Indication: FIBROMYALGIA
  2. FENTANYL LOZENGES [Suspect]
     Active Substance: FENTANYL CITRATE
     Indication: ARTHRITIS
  3. OXYCODONE [Suspect]
     Active Substance: OXYCODONE
     Indication: ARTHRITIS
  4. ACTIQ [Suspect]
     Active Substance: FENTANYL CITRATE
     Indication: ARTHRITIS
  5. SUBSYS [Suspect]
     Active Substance: FENTANYL
     Indication: FIBROMYALGIA
     Route: 060
     Dates: end: 201605
  6. FENTANYL TRANSDERMAL SYSTEM [Suspect]
     Active Substance: FENTANYL
     Indication: FIBROMYALGIA
  7. FENTANYL TRANSDERMAL SYSTEM [Suspect]
     Active Substance: FENTANYL
     Indication: ARTHRITIS
  8. SUBSYS [Suspect]
     Active Substance: FENTANYL
     Indication: ARTHRITIS
     Route: 060
     Dates: start: 201501
  9. FENTANYL LOZENGES [Suspect]
     Active Substance: FENTANYL CITRATE
     Indication: FIBROMYALGIA
  10. OXYCODONE [Suspect]
     Active Substance: OXYCODONE
     Indication: FIBROMYALGIA

REACTIONS (3)
  - Drug dependence [Unknown]
  - Injury [Unknown]
  - Adverse event [Unknown]
